FAERS Safety Report 6019598-5 (Version None)
Quarter: 2008Q4

REPORT INFORMATION
  Report Type: 
  Country: None (occurrence: None)
  Receive Date: 20081222
  Receipt Date: 20080717
  Transmission Date: 20090506
  Serious: Yes (Hospitalization)
  Sender: FDA-Public Use
  Company Number: US-1166801

PATIENT
  Sex: Female

DRUGS (3)
  1. TOBREX [Suspect]
     Indication: CORNEAL ABRASION
     Dosage: (4X AS DIRECTED OPHTHALMIC)
     Route: 047
     Dates: start: 20080711, end: 20080712
  2. TOBRADEX [Suspect]
     Indication: CORNEAL ABRASION
     Dosage: (OPHTHALMIC)
     Route: 047
     Dates: start: 20080825, end: 20080829
  3. TOBRADEX [Suspect]
     Indication: EYE INFECTION
     Dosage: (OPHTHALMIC)
     Route: 047
     Dates: start: 20080825, end: 20080829

REACTIONS (7)
  - ERYTHEMA [None]
  - EYE IRRITATION [None]
  - EYE PAIN [None]
  - EYE PRURITUS [None]
  - LACRIMATION INCREASED [None]
  - OCULAR HYPERAEMIA [None]
  - SKIN IRRITATION [None]
